FAERS Safety Report 25972986 (Version 2)
Quarter: 2025Q4

REPORT INFORMATION
  Report Type: Spontaneous
  Country: JP (occurrence: JP)
  Receive Date: 20251029
  Receipt Date: 20251109
  Transmission Date: 20260117
  Serious: Yes (Death, Other)
  Sender: ROCHE
  Company Number: JP-CHUGAI-2025028510

PATIENT
  Age: 85 Year
  Sex: Male

DRUGS (2)
  1. AVASTIN [Suspect]
     Active Substance: BEVACIZUMAB
     Indication: Hepatocellular carcinoma
     Dosage: 15 MILLIGRAM/KILOGRAM, ONCE/3WEEKS
     Route: 042
     Dates: start: 2024, end: 2025
  2. TECENTRIQ [Suspect]
     Active Substance: ATEZOLIZUMAB
     Indication: Hepatocellular carcinoma
     Dosage: UNK
     Route: 042
     Dates: start: 2024, end: 2025

REACTIONS (7)
  - Brain fog [Unknown]
  - Marasmus [Fatal]
  - Urinary tract infection [Fatal]
  - Acute kidney injury [Unknown]
  - Renal impairment [Unknown]
  - Hepatic function abnormal [Unknown]
  - Disease progression [Fatal]

NARRATIVE: CASE EVENT DATE: 20250101
